FAERS Safety Report 26157851 (Version 1)
Quarter: 2025Q4

REPORT INFORMATION
  Report Type: Spontaneous
  Country: US (occurrence: US)
  Receive Date: 20251215
  Receipt Date: 20251215
  Transmission Date: 20260118
  Serious: Yes (Death, Life-Threatening, Hospitalization)
  Sender: MYLAN
  Company Number: US-MYLANLABS-2025M1104185

PATIENT
  Age: 43 Year
  Sex: Male
  Weight: 162 kg

DRUGS (12)
  1. METFORMIN HYDROCHLORIDE [Suspect]
     Active Substance: METFORMIN HYDROCHLORIDE
     Indication: Product used for unknown indication
     Dosage: 30 GRAM
     Route: 061
  2. METFORMIN HYDROCHLORIDE [Suspect]
     Active Substance: METFORMIN HYDROCHLORIDE
     Dosage: 30 GRAM
     Route: 048
  3. METFORMIN HYDROCHLORIDE [Suspect]
     Active Substance: METFORMIN HYDROCHLORIDE
     Dosage: 30 GRAM
     Route: 048
  4. METFORMIN HYDROCHLORIDE [Suspect]
     Active Substance: METFORMIN HYDROCHLORIDE
     Dosage: 30 GRAM
     Route: 061
  5. HYDROXYCHLOROQUINE [Suspect]
     Active Substance: HYDROXYCHLOROQUINE
     Indication: Product used for unknown indication
     Dosage: 6 GRAM
     Route: 061
  6. HYDROXYCHLOROQUINE [Suspect]
     Active Substance: HYDROXYCHLOROQUINE
     Dosage: 6 GRAM
     Route: 048
  7. HYDROXYCHLOROQUINE [Suspect]
     Active Substance: HYDROXYCHLOROQUINE
     Dosage: 6 GRAM
     Route: 048
  8. HYDROXYCHLOROQUINE [Suspect]
     Active Substance: HYDROXYCHLOROQUINE
     Dosage: 6 GRAM
     Route: 061
  9. TRAZODONE [Suspect]
     Active Substance: TRAZODONE HYDROCHLORIDE
     Indication: Product used for unknown indication
     Dosage: 6 GRAM
     Route: 061
  10. TRAZODONE [Suspect]
     Active Substance: TRAZODONE HYDROCHLORIDE
     Dosage: 6 GRAM
     Route: 048
  11. TRAZODONE [Suspect]
     Active Substance: TRAZODONE HYDROCHLORIDE
     Dosage: 6 GRAM
     Route: 048
  12. TRAZODONE [Suspect]
     Active Substance: TRAZODONE HYDROCHLORIDE
     Dosage: 6 GRAM
     Route: 061

REACTIONS (11)
  - Acute respiratory failure [Fatal]
  - Metabolic acidosis [Fatal]
  - Hypokalaemia [Fatal]
  - Electrocardiogram PR prolongation [Fatal]
  - Electrocardiogram QRS complex prolonged [Fatal]
  - Electrocardiogram QT prolonged [Fatal]
  - Pneumonia aspiration [Fatal]
  - Hypotension [Fatal]
  - Multiple organ dysfunction syndrome [Fatal]
  - Toxicity to various agents [Fatal]
  - Intentional overdose [Fatal]
